FAERS Safety Report 9046371 (Version 1)
Quarter: 2013Q1

REPORT INFORMATION
  Report Type: Spontaneous
  Country: US (occurrence: None)
  Receive Date: 20130128
  Receipt Date: 20130128
  Transmission Date: 20140127
  Serious: Yes (Hospitalization)
  Sender: FDA-Public Use
  Company Number: None

PATIENT
  Sex: Female
  Weight: 64 kg

DRUGS (7)
  1. DOXORUBICIN HYDROCHLORIDE (123127) [Suspect]
  2. AMLODIPINE [Concomitant]
  3. COMPAZINE [Concomitant]
  4. EMEND [Concomitant]
  5. LABETALOL [Concomitant]
  6. NORCO [Concomitant]
  7. ZOFRAN [Concomitant]

REACTIONS (4)
  - Syncope [None]
  - Femoral neck fracture [None]
  - Loss of consciousness [None]
  - Hip fracture [None]
